FAERS Safety Report 14698641 (Version 1)
Quarter: 2018Q1

REPORT INFORMATION
  Report Type: Spontaneous
  Country: US (occurrence: US)
  Receive Date: 20180330
  Receipt Date: 20180330
  Transmission Date: 20180509
  Serious: No
  Sender: FDA-Public Use
  Company Number: US-SHIRE-US201811786

PATIENT
  Age: 80 Year
  Sex: Female

DRUGS (1)
  1. XIIDRA [Suspect]
     Active Substance: LIFITEGRAST
     Indication: DRY EYE
     Dosage: 2 DROPS
     Route: 047
     Dates: start: 20180321, end: 20180323

REACTIONS (4)
  - Instillation site pain [Recovering/Resolving]
  - Instillation site erythema [Recovering/Resolving]
  - Vision blurred [Recovering/Resolving]
  - Instillation site reaction [Unknown]

NARRATIVE: CASE EVENT DATE: 20180321
